FAERS Safety Report 7066252-7 (Version None)
Quarter: 2010Q4

REPORT INFORMATION
  Report Type: 
  Country: None (occurrence: None)
  Receive Date: 20101027
  Receipt Date: 20100813
  Transmission Date: 20110411
  Serious: Yes (Other)
  Sender: FDA-Public Use
  Company Number: HQWYE690811OCT04

PATIENT
  Sex: Female

DRUGS (7)
  1. PREMPRO [Suspect]
     Indication: MENOPAUSAL SYMPTOMS
  2. PREMPRO [Suspect]
     Indication: PROPHYLAXIS
  3. PREMPRO [Suspect]
     Indication: CARDIAC DISORDER
  4. PREMPRO [Suspect]
     Indication: OSTEOPOROSIS
  5. PREMARIN [Suspect]
  6. PROVERA [Suspect]
  7. ACTIVELLA [Suspect]

REACTIONS (1)
  - BREAST CANCER [None]
